FAERS Safety Report 24902322 (Version 1)
Quarter: 2025Q1

REPORT INFORMATION
  Report Type: Spontaneous
  Country: CH (occurrence: CH)
  Receive Date: 20250130
  Receipt Date: 20250130
  Transmission Date: 20250408
  Serious: Yes (Hospitalization)
  Sender: ABBVIE
  Company Number: CH-ABBVIE-6102661

PATIENT
  Age: 54 Year
  Sex: Female
  Weight: 60 kg

DRUGS (6)
  1. HUMIRA [Suspect]
     Active Substance: ADALIMUMAB
     Indication: Colitis ulcerative
     Route: 058
     Dates: start: 20231024, end: 20240906
  2. HUMIRA [Suspect]
     Active Substance: ADALIMUMAB
     Route: 058
     Dates: start: 20240906, end: 20241024
  3. RITUXIMAB [Concomitant]
     Active Substance: RITUXIMAB
     Indication: Product used for unknown indication
     Route: 042
     Dates: start: 20241028
  4. ALVESCO [Concomitant]
     Active Substance: CICLESONIDE
     Indication: Colitis ulcerative
     Dosage: 160 MICROGRAM. START DATE TEXT: LONG TERM TREATMENT
     Route: 055
  5. METHOTREXATE SODIUM [Concomitant]
     Active Substance: METHOTREXATE SODIUM
     Indication: Colitis ulcerative
     Route: 058
     Dates: start: 20231013, end: 20240906
  6. Salofalk [Concomitant]
     Indication: Colitis ulcerative
     Dosage: START DATE TEXT: LONG TERM TREATMENT
     Route: 054

REACTIONS (9)
  - Folate deficiency [Unknown]
  - Jaundice [Unknown]
  - Chromaturia [Unknown]
  - Warm autoimmune haemolytic anaemia [Recovered/Resolved]
  - Faeces pale [Unknown]
  - Blood bilirubin unconjugated increased [Unknown]
  - Bilirubin conjugated increased [Unknown]
  - Blood lactate dehydrogenase increased [Unknown]
  - Haptoglobin decreased [Unknown]

NARRATIVE: CASE EVENT DATE: 20240906
